FAERS Safety Report 16708093 (Version 1)
Quarter: 2019Q3

REPORT INFORMATION
  Report Type: Spontaneous
  Country: NZ (occurrence: NZ)
  Receive Date: 20190815
  Receipt Date: 20190815
  Transmission Date: 20191004
  Serious: Yes (Hospitalization, Other)
  Sender: FDA-Public Use
  Company Number: NZ-009507513-1908NZL001926

PATIENT
  Sex: Male

DRUGS (1)
  1. TEMOZOLOMIDE. [Suspect]
     Active Substance: TEMOZOLOMIDE
     Dosage: UNK, EVERY 4 WEEKS

REACTIONS (10)
  - Hypoaesthesia [Unknown]
  - Brain oedema [Unknown]
  - Migraine [Unknown]
  - Fatigue [Unknown]
  - Apparent death [Unknown]
  - Weight increased [Unknown]
  - Feeling abnormal [Unknown]
  - Insomnia [Unknown]
  - Adverse event [Unknown]
  - Gait disturbance [Unknown]
